FAERS Safety Report 10244091 (Version 1)
Quarter: 2014Q2

REPORT INFORMATION
  Report Type: Spontaneous
  Country: CH (occurrence: CH)
  Receive Date: 20140618
  Receipt Date: 20140618
  Transmission Date: 20141212
  Serious: Yes (Other)
  Sender: FDA-Public Use
  Company Number: CH-PFIZER INC-2014166670

PATIENT
  Age: 92 Year
  Sex: Female
  Weight: 61.8 kg

DRUGS (2)
  1. PANTOZOL [Suspect]
     Indication: GASTROINTESTINAL HAEMORRHAGE
     Dosage: 8MG, Q1HR
     Route: 041
     Dates: start: 201402, end: 201402
  2. PANTOZOL [Suspect]
     Indication: MELAENA

REACTIONS (3)
  - Catheter site infection [Recovered/Resolved]
  - Catheter site phlebitis [Recovered/Resolved]
  - Off label use [Recovered/Resolved]
